FAERS Safety Report 13247425 (Version 2)
Quarter: 2017Q1

REPORT INFORMATION
  Report Type: Spontaneous
  Country: IL (occurrence: SI)
  Receive Date: 20170217
  Receipt Date: 20170228
  Transmission Date: 20170428
  Serious: Yes (Death, Other)
  Sender: FDA-Public Use
  Company Number: IL-ALLERGAN-1705841US

PATIENT
  Age: 55 Year
  Sex: Male

DRUGS (5)
  1. CLINDAMYCIN. [Concomitant]
     Active Substance: CLINDAMYCIN
     Indication: PATHOGEN RESISTANCE
  2. VANCOMYCIN [Concomitant]
     Active Substance: VANCOMYCIN
     Indication: PATHOGEN RESISTANCE
  3. METRONIDAZOLE. [Concomitant]
     Active Substance: METRONIDAZOLE
     Indication: PATHOGEN RESISTANCE
  4. CEFTAZIDIME;AVIBACTAM UNK [Suspect]
     Active Substance: AVIBACTAM SODIUM\CEFTAZIDIME
     Indication: PATHOGEN RESISTANCE
     Dosage: UNK
     Route: 065
     Dates: start: 20150310
  5. COLISTIN [Concomitant]
     Active Substance: COLISTIN
     Indication: PATHOGEN RESISTANCE

REACTIONS (2)
  - Drug ineffective [Unknown]
  - Treatment failure [Fatal]
